FAERS Safety Report 7454266-4 (Version None)
Quarter: 2011Q2

REPORT INFORMATION
  Report Type: 
  Country: None (occurrence: None)
  Receive Date: 20110503
  Receipt Date: 20101228
  Transmission Date: 20111010
  Serious: Yes (Hospitalization, Other)
  Sender: FDA-Public Use
  Company Number: US-BAYER-201029718NA

PATIENT
  Age: 50 Year
  Sex: Female
  Weight: 111 kg

DRUGS (11)
  1. ESTRADIOL [Concomitant]
     Dosage: 1 MG, UNK
  2. PROGESTERONE [Concomitant]
     Dosage: 100 MG, UNK
  3. YAZ [Suspect]
     Indication: MENSTRUAL CYCLE MANAGEMENT
     Dosage: FOR SOMETIME, TID
     Route: 048
     Dates: start: 20060605, end: 20080717
  4. IRON [IRON] [Concomitant]
     Indication: ANAEMIA
  5. PREMARIN [Concomitant]
     Indication: HORMONE REPLACEMENT THERAPY
  6. LOVENOX [Concomitant]
     Dosage: 100 MG, BID
     Dates: start: 20080721, end: 20080725
  7. YAZ [Suspect]
     Indication: ORAL CONTRACEPTION
  8. LEXAPRO [Concomitant]
     Dosage: 10 MG, UNK
  9. MULTI-VITAMINS [Concomitant]
  10. PROVERA [Concomitant]
     Indication: HORMONE REPLACEMENT THERAPY
  11. PROMETRIUM [Concomitant]
     Dosage: 100 MG, UNK

REACTIONS (3)
  - DEEP VEIN THROMBOSIS [None]
  - PULMONARY EMBOLISM [None]
  - PAIN [None]
